FAERS Safety Report 24554944 (Version 1)
Quarter: 2024Q4

REPORT INFORMATION
  Report Type: Spontaneous
  Country: US (occurrence: US)
  Receive Date: 20241028
  Receipt Date: 20241028
  Transmission Date: 20250114
  Serious: Yes (Life-Threatening, Hospitalization, Other)
  Sender: ALKEM
  Company Number: US-ALKEM LABORATORIES LIMITED-US-ALKEM-2024-23710

PATIENT
  Age: 71 Year
  Sex: Male

DRUGS (13)
  1. TOBRAMYCIN [Suspect]
     Active Substance: TOBRAMYCIN\TOBRAMYCIN SULFATE
     Indication: Arthritis infective
     Dosage: 2.4 GRAM, CEMENT
     Route: 065
  2. TOBRAMYCIN [Suspect]
     Active Substance: TOBRAMYCIN\TOBRAMYCIN SULFATE
     Indication: Staphylococcal infection
     Dosage: 2.4 GRAM, CEMENT
     Route: 065
  3. VANCOMYCIN [Concomitant]
     Active Substance: VANCOMYCIN
     Indication: Arthritis infective
     Dosage: 2 GRAM, CEMENT
     Route: 065
  4. VANCOMYCIN [Concomitant]
     Active Substance: VANCOMYCIN
     Indication: Staphylococcal infection
     Dosage: 2 GRAM, CEMENT
     Route: 065
  5. VANCOMYCIN [Concomitant]
     Active Substance: VANCOMYCIN
     Indication: Clostridium difficile infection
     Dosage: 125 MILLIGRAM, BID
     Route: 048
  6. VANCOMYCIN [Concomitant]
     Active Substance: VANCOMYCIN
     Dosage: 3 MILLIGRAM
     Route: 048
  7. VANCOMYCIN [Concomitant]
     Active Substance: VANCOMYCIN
     Dosage: 1 MILLIGRAM, STIMULAN BEADS
     Route: 048
  8. GENTAMICIN [Concomitant]
     Active Substance: GENTAMICIN
     Indication: Arthritis infective
     Dosage: 240 MILLIGRAM, STIMULAN BEADS
     Route: 065
  9. GENTAMICIN [Concomitant]
     Active Substance: GENTAMICIN
     Indication: Staphylococcal infection
  10. CEFAZOLIN [Concomitant]
     Active Substance: CEFAZOLIN
     Indication: Arthritis infective
     Dosage: 4 GRAM, EVERY 8 HOURS
     Route: 042
  11. CEFAZOLIN [Concomitant]
     Active Substance: CEFAZOLIN
     Indication: Staphylococcal infection
     Dosage: 4 GRAM
     Route: 042
  12. CEFAZOLIN [Concomitant]
     Active Substance: CEFAZOLIN
     Indication: Clostridium difficile infection
     Dosage: 2 GRAM
     Route: 042
  13. CEFAZOLIN [Concomitant]
     Active Substance: CEFAZOLIN
     Dosage: 3 GRAM, SPACER
     Route: 065

REACTIONS (3)
  - Drug level increased [Recovering/Resolving]
  - Acute kidney injury [Unknown]
  - Toxicity to various agents [Recovering/Resolving]
